FAERS Safety Report 8895784 (Version 2)
Quarter: 2015Q2

REPORT INFORMATION
  Report Type: Report from Study
  Country: US (occurrence: US)
  Receive Date: 20121108
  Receipt Date: 20150423
  Transmission Date: 20150821
  Serious: Yes (Death)
  Sender: FDA-Public Use
  Company Number: US-ROCHE-1136859

PATIENT
  Sex: Male

DRUGS (24)
  1. NEULASTA [Concomitant]
     Active Substance: PEGFILGRASTIM
     Route: 065
  2. DOXIL [Concomitant]
     Active Substance: DOXORUBICIN HYDROCHLORIDE
     Route: 042
  3. ARA-C [Concomitant]
     Active Substance: CYTARABINE
  4. MITOXANTRONE [Concomitant]
     Active Substance: MITOXANTRONE HYDROCHLORIDE
  5. NAVELBINE [Concomitant]
     Active Substance: VINORELBINE TARTRATE
  6. BENADRYL [Concomitant]
     Active Substance: DIPHENHYDRAMINE HYDROCHLORIDE
  7. GEMZAR [Concomitant]
     Active Substance: GEMCITABINE HYDROCHLORIDE
  8. CYCLOPHOSPHAMIDE. [Concomitant]
     Active Substance: CYCLOPHOSPHAMIDE
  9. DECADRON [Concomitant]
     Active Substance: DEXAMETHASONE
  10. IMMUNOGLOBULIN [Concomitant]
     Active Substance: HUMAN IMMUNOGLOBULIN G
     Route: 065
  11. PREDNISONE. [Concomitant]
     Active Substance: PREDNISONE
  12. ANZEMET [Concomitant]
     Active Substance: DOLASETRON MESYLATE
  13. PROCRIT [Concomitant]
     Active Substance: ERYTHROPOIETIN
     Route: 065
  14. ARANESP [Concomitant]
     Active Substance: DARBEPOETIN ALFA
     Route: 065
  15. RITUXAN [Suspect]
     Active Substance: RITUXIMAB
     Route: 042
  16. ETOPOSIDE. [Concomitant]
     Active Substance: ETOPOSIDE
  17. PLATINOL [Concomitant]
     Active Substance: CISPLATIN
  18. VINCRISTINE [Concomitant]
     Active Substance: VINCRISTINE
  19. RITUXAN [Suspect]
     Active Substance: RITUXIMAB
     Route: 042
  20. ONCOVIN [Concomitant]
     Active Substance: VINCRISTINE SULFATE
  21. PREDNISOLONE. [Concomitant]
     Active Substance: PREDNISOLONE
  22. RITUXAN [Suspect]
     Active Substance: RITUXIMAB
     Indication: DIFFUSE LARGE B-CELL LYMPHOMA
     Route: 042
     Dates: start: 20020604
  23. SOLU-MEDROL [Concomitant]
     Active Substance: METHYLPREDNISOLONE SODIUM SUCCINATE
  24. DEXAMETHASONE. [Concomitant]
     Active Substance: DEXAMETHASONE

REACTIONS (14)
  - Haemoptysis [Unknown]
  - Sinusitis [Unknown]
  - Off label use [Unknown]
  - Cough [Unknown]
  - Cardiac failure congestive [Unknown]
  - Dyspnoea paroxysmal nocturnal [Unknown]
  - Lymphoma [Unknown]
  - Chronic obstructive pulmonary disease [Unknown]
  - Pneumonia [Unknown]
  - Hypogammaglobulinaemia [Unknown]
  - Disease progression [Unknown]
  - Muscle spasms [Unknown]
  - Death [Fatal]
  - Pyrexia [Recovered/Resolved]
